FAERS Safety Report 10486337 (Version 1)
Quarter: 2014Q4

REPORT INFORMATION
  Report Type: Spontaneous
  Country: US (occurrence: US)
  Receive Date: 20141001
  Receipt Date: 20141001
  Transmission Date: 20150528
  Serious: Yes (Other)
  Sender: FDA-Public Use
  Company Number: US-SUN PHARMACEUTICAL INDUSTRIES LTD-2014SUN02185

PATIENT

DRUGS (3)
  1. CARBIDOPA + LEVODOPA ER TABS 25MG/100MG [Suspect]
     Active Substance: CARBIDOPA\LEVODOPA
     Dosage: CARBIDOPA/LEVODOPA CR 200 MG, NIGHT; STOPPED AFTER 6 MONTHS
     Route: 065
  2. CARBIDOPA + LEVODOPA ER TABS 25MG/100MG [Suspect]
     Active Substance: CARBIDOPA\LEVODOPA
     Indication: PARKINSON^S DISEASE
     Dosage: CARBIDOPA/LEVODOPA TITRATION 450 MG, 1 DOSE
     Route: 065
  3. CARBIDOPA + LEVODOPA ER TABS 25MG/100MG [Suspect]
     Active Substance: CARBIDOPA\LEVODOPA
     Dosage: CARBIDOPA/LEVODOPA CR 150 MG, EVERY 4 HOURS

REACTIONS (5)
  - Dystonia [Recovering/Resolving]
  - Hyperhidrosis [Recovering/Resolving]
  - Dyskinesia [Recovering/Resolving]
  - Compulsions [Recovering/Resolving]
  - Stereotypy [Recovered/Resolved]
